FAERS Safety Report 5520561-9 (Version None)
Quarter: 2007Q4

REPORT INFORMATION
  Report Type: 
  Country: None (occurrence: None)
  Receive Date: 20071119
  Receipt Date: 20071106
  Transmission Date: 20080405
  Serious: Yes (Other)
  Sender: FDA-Public Use
  Company Number: US-PFIZER INC-2007074899

PATIENT
  Sex: Female
  Weight: 90.7 kg

DRUGS (7)
  1. LYRICA [Suspect]
     Indication: NERVE INJURY
     Dates: start: 20060401, end: 20070701
  2. LYRICA [Suspect]
     Indication: PAIN IN EXTREMITY
  3. GABAPENTIN [Suspect]
     Indication: NERVE INJURY
  4. GABAPENTIN [Suspect]
     Indication: PAIN IN EXTREMITY
  5. LORTAB [Concomitant]
  6. ATIVAN [Concomitant]
  7. PAXIL [Concomitant]

REACTIONS (3)
  - MENTAL IMPAIRMENT [None]
  - OEDEMA [None]
  - RENAL DISORDER [None]
